FAERS Safety Report 7578142-1 (Version None)
Quarter: 2011Q2

REPORT INFORMATION
  Report Type: 
  Country: None (occurrence: None)
  Receive Date: 20110628
  Receipt Date: 20110624
  Transmission Date: 20111010
  Serious: Yes (Hospitalization)
  Sender: FDA-Public Use
  Company Number: A0893270A

PATIENT
  Sex: Female
  Weight: 60.9 kg

DRUGS (6)
  1. LISINOPRIL [Concomitant]
  2. AVANDIA [Suspect]
     Indication: DIABETES MELLITUS
     Route: 048
     Dates: start: 19991001, end: 20030305
  3. NOVOLOG [Concomitant]
  4. ZOCOR [Concomitant]
  5. CLARITIN [Concomitant]
  6. LANTUS [Concomitant]

REACTIONS (3)
  - ATRIAL FIBRILLATION [None]
  - CORONARY ARTERY DISEASE [None]
  - MYOCARDIAL INFARCTION [None]
